FAERS Safety Report 8657779 (Version 7)
Quarter: 2013Q3

REPORT INFORMATION
  Report Type: Spontaneous
  Country: US (occurrence: US)
  Receive Date: 20120710
  Receipt Date: 20130816
  Transmission Date: 20140515
  Serious: No
  Sender: FDA-Public Use
  Company Number: US-PFIZER INC-2012164279

PATIENT
  Age: 64 Year
  Sex: Female
  Weight: 81.63 kg

DRUGS (10)
  1. LYRICA [Suspect]
     Indication: FIBROMYALGIA
     Dosage: 75 MG, 2X/DAY
     Route: 048
     Dates: start: 2010, end: 20130115
  2. LYRICA [Suspect]
     Dosage: UNK
     Route: 048
     Dates: end: 20130706
  3. LYRICA [Suspect]
     Dosage: UNK
     Route: 048
     Dates: end: 20130709
  4. LYRICA [Suspect]
     Dosage: UNK
     Route: 048
     Dates: start: 201307
  5. DIOVANE [Concomitant]
     Indication: HYPERTENSION
     Dosage: UNK
  6. VERAPAMIL [Concomitant]
     Indication: HYPERTENSION
     Dosage: UNK
  7. SPIRONOLACTONE [Concomitant]
     Indication: HYPERTENSION
     Dosage: 25 MG, UNK
  8. SYNTHROID [Concomitant]
     Indication: HYPOTHYROIDISM
     Dosage: UNK
  9. GLUCOPHAGE [Concomitant]
     Indication: DIABETES MELLITUS
     Dosage: UNK
  10. LASIX [Concomitant]
     Dosage: UNK

REACTIONS (6)
  - Pain [Not Recovered/Not Resolved]
  - Headache [Not Recovered/Not Resolved]
  - Pain in extremity [Not Recovered/Not Resolved]
  - Chest pain [Not Recovered/Not Resolved]
  - Dysstasia [Not Recovered/Not Resolved]
  - Burning sensation [Not Recovered/Not Resolved]
